FAERS Safety Report 6439713-9 (Version None)
Quarter: 2009Q4

REPORT INFORMATION
  Report Type: 
  Country: None (occurrence: None)
  Receive Date: 20091113
  Receipt Date: 20090803
  Transmission Date: 20100525
  Serious: Yes (Other)
  Sender: FDA-Public Use
  Company Number: FR-PFIZER INC-2008086130

PATIENT
  Sex: Male
  Weight: 3.12 kg

DRUGS (2)
  1. ATARAX [Suspect]
     Dosage: 25 MG, 1X/DAY
     Route: 064
  2. XYZAL [Suspect]
     Dosage: 1 DF, 1X/DAY
     Route: 064

REACTIONS (5)
  - COELIAC DISEASE [None]
  - DRUG EXPOSURE DURING PREGNANCY [None]
  - FOOD INTOLERANCE [None]
  - LACTOSE INTOLERANCE [None]
  - MATERNAL DRUGS AFFECTING FOETUS [None]
